FAERS Safety Report 19295127 (Version 1)
Quarter: 2021Q2

REPORT INFORMATION
  Report Type: Spontaneous
  Country: ES (occurrence: ES)
  Receive Date: 20210524
  Receipt Date: 20210524
  Transmission Date: 20210717
  Serious: Yes (Other)
  Sender: FDA-Public Use
  Company Number: GXKR2005ES01729

PATIENT
  Age: 54 Year
  Sex: Male

DRUGS (1)
  1. DILTIAZEM HYDROCHLORIDE. [Suspect]
     Active Substance: DILTIAZEM HYDROCHLORIDE
     Indication: PRODUCT USED FOR UNKNOWN INDICATION
     Dosage: UNK
     Route: 048
     Dates: start: 2011

REACTIONS (6)
  - Erythrodermic psoriasis [Recovered/Resolved]
  - Erythema multiforme [Recovered/Resolved]
  - Eosinophilia [Recovered/Resolved]
  - Dermatitis exfoliative [Recovered/Resolved]
  - Biopsy skin abnormal [Recovering/Resolving]
  - White blood cell count increased [Recovered/Resolved]

NARRATIVE: CASE EVENT DATE: 2011
